FAERS Safety Report 25898376 (Version 2)
Quarter: 2025Q4

REPORT INFORMATION
  Report Type: Report from Study
  Country: US (occurrence: US)
  Receive Date: 20251008
  Receipt Date: 20251208
  Transmission Date: 20260117
  Serious: Yes (Other)
  Sender: ABBVIE
  Company Number: US-ABBVIE-6493425

PATIENT
  Age: 67 Year
  Sex: Female
  Weight: 108 kg

DRUGS (1)
  1. RINVOQ [Suspect]
     Active Substance: UPADACITINIB
     Indication: Psoriatic arthropathy
     Route: 048
     Dates: start: 20230801

REACTIONS (1)
  - Left atrial appendage closure implant [Recovering/Resolving]

NARRATIVE: CASE EVENT DATE: 20250101
